FAERS Safety Report 4919246-9 (Version None)
Quarter: 2006Q1

REPORT INFORMATION
  Report Type: 
  Country: None (occurrence: None)
  Receive Date: 20060222
  Receipt Date: 20060213
  Transmission Date: 20060701
  Serious: Yes (Hospitalization)
  Sender: FDA-Public Use
  Company Number: US-ABBOTT-06P-163-0324857-00

PATIENT
  Sex: Male

DRUGS (1)
  1. SYNAGIS INJECTION [Suspect]
     Indication: ANTIVIRAL PROPHYLAXIS
     Route: 030
     Dates: start: 20051213

REACTIONS (9)
  - APNOEA [None]
  - ASPIRATION [None]
  - CYANOSIS [None]
  - GASTROOESOPHAGEAL REFLUX DISEASE [None]
  - LISTLESS [None]
  - RESPIRATORY FAILURE [None]
  - RESPIRATORY SYNCYTIAL VIRUS INFECTION [None]
  - STRIDOR [None]
  - TRACHEOMALACIA [None]
